FAERS Safety Report 19132426 (Version 2)
Quarter: 2021Q2

REPORT INFORMATION
  Report Type: Spontaneous
  Country: US (occurrence: US)
  Receive Date: 20210414
  Receipt Date: 20210505
  Transmission Date: 20210717
  Serious: No
  Sender: FDA-Public Use
  Company Number: US-LUPIN PHARMACEUTICALS INC.-2021-03763

PATIENT
  Sex: Male

DRUGS (1)
  1. QUETIAPINE TABLETS USP, 100 MG [Suspect]
     Active Substance: QUETIAPINE
     Indication: INSOMNIA
     Dosage: 100 MILLIGRAM, QD
     Route: 065

REACTIONS (4)
  - Insomnia [Unknown]
  - Intentional product use issue [Unknown]
  - Dry mouth [Recovered/Resolved]
  - Drug ineffective [Unknown]
